FAERS Safety Report 8559590-X (Version None)
Quarter: 2012Q3

REPORT INFORMATION
  Report Type: 
  Country: None (occurrence: None)
  Receive Date: 20120802
  Receipt Date: 20120724
  Transmission Date: 20120928
  Serious: Yes (Hospitalization, Other)
  Sender: FDA-Public Use
  Company Number: US-MYLANLABS-2012S1015090

PATIENT
  Age: 69 Year
  Sex: Female
  Weight: 63.96 kg

DRUGS (3)
  1. TEGRETOL [Concomitant]
     Indication: TRIGEMINAL NERVE DISORDER
     Route: 048
  2. TRIAMTERENE AND HYDROCHLOROTHIAZIDE [Suspect]
     Indication: BLOOD PRESSURE INCREASED
     Route: 048
     Dates: start: 20120630, end: 20120701
  3. NEURONTIN [Concomitant]
     Indication: TRIGEMINAL NERVE DISORDER
     Route: 048

REACTIONS (3)
  - BLOOD SODIUM DECREASED [None]
  - VOMITING [None]
  - ABDOMINAL PAIN [None]
